FAERS Safety Report 12892304 (Version 2)
Quarter: 2016Q4

REPORT INFORMATION
  Report Type: Spontaneous
  Country: JP (occurrence: JP)
  Receive Date: 20161028
  Receipt Date: 20161128
  Transmission Date: 20170207
  Serious: Yes (Other)
  Sender: FDA-Public Use
  Company Number: PHJP2016JP030518

PATIENT
  Age: 83 Year
  Sex: Female
  Weight: 40 kg

DRUGS (1)
  1. NEORAL [Suspect]
     Active Substance: CYCLOSPORINE
     Indication: APLASTIC ANAEMIA
     Dosage: 60 MG, BID
     Route: 048

REACTIONS (5)
  - Drug effect incomplete [Unknown]
  - Product use issue [Unknown]
  - Rash [Unknown]
  - Allergic transfusion reaction [Unknown]
  - Hypersensitivity [Unknown]
